FAERS Safety Report 20187111 (Version 2)
Quarter: 2022Q1

REPORT INFORMATION
  Report Type: Spontaneous
  Country: US (occurrence: US)
  Receive Date: 20211215
  Receipt Date: 20220307
  Transmission Date: 20220423
  Serious: Yes (Other)
  Sender: FDA-Public Use
  Company Number: US-drreddys-SPO/USA/21/0144675

PATIENT
  Age: 34 Year
  Sex: Female

DRUGS (4)
  1. ZENATANE [Suspect]
     Active Substance: ISOTRETINOIN
     Indication: Product used for unknown indication
     Dosage: RMA ISSUE DATE: 9 SEPTEMBER 2021 11:55:01 AM, 3 AUGUST 2021 6:09:04 PM, 7 JULY 2021 8:57:26 AM, 31 M
     Dates: start: 20210421, end: 20211118
  2. ZENATANE [Suspect]
     Active Substance: ISOTRETINOIN
     Dosage: RMA ISSUE DATE: 21/APRIL/2021 6:14:45 PM
  3. Ocella OCP [Concomitant]
     Indication: Product used for unknown indication
     Dates: start: 202103
  4. PLAN B [Concomitant]
     Active Substance: LEVONORGESTREL
     Indication: Product used for unknown indication
     Dates: start: 20211107, end: 20211107

REACTIONS (2)
  - Abortion induced [Unknown]
  - Exposure during pregnancy [Unknown]
